FAERS Safety Report 4415451-9 (Version None)
Quarter: 2004Q3

REPORT INFORMATION
  Report Type: 
  Country: None (occurrence: None)
  Receive Date: 20040730
  Receipt Date: 20040719
  Transmission Date: 20050211
  Serious: Yes (Death, Hospitalization, Other)
  Sender: FDA-Public Use
  Company Number: A-CH2004-06899

PATIENT
  Age: 69 Year
  Sex: Female

DRUGS (8)
  1. TRACLEER [Suspect]
     Indication: PULMONARY HYPERTENSION
     Dosage: SEE IMAGE
     Route: 048
     Dates: end: 20040630
  2. TRACLEER [Suspect]
     Indication: PULMONARY HYPERTENSION
     Dosage: SEE IMAGE
     Route: 048
     Dates: start: 20040505
  3. SPIRIVA [Concomitant]
  4. TORSEMIDE [Concomitant]
  5. NEXIUM [Concomitant]
  6. PREDNISONE TAB [Concomitant]
  7. VITAMIN D [Concomitant]
  8. CALCIUM (CALCIUM) [Concomitant]

REACTIONS (4)
  - BRONCHIAL INFECTION [None]
  - CONDITION AGGRAVATED [None]
  - DISEASE RECURRENCE [None]
  - RIGHT VENTRICULAR FAILURE [None]
